FAERS Safety Report 7871444-0 (Version None)
Quarter: 2011Q4

REPORT INFORMATION
  Report Type: 
  Country: None (occurrence: None)
  Receive Date: 20111029
  Receipt Date: 20110302
  Transmission Date: 20120403
  Serious: No
  Sender: FDA-Public Use
  Company Number: US-AMGEN-USASP2011011869

PATIENT
  Age: 28 Year
  Sex: Female

DRUGS (1)
  1. ENBREL [Suspect]
     Indication: RHEUMATOID ARTHRITIS
     Dosage: 50 MG, QWK
     Dates: start: 20110204

REACTIONS (5)
  - ABDOMINAL PAIN UPPER [None]
  - BLADDER DISORDER [None]
  - WHITE BLOOD CELLS URINE POSITIVE [None]
  - URINE ODOUR ABNORMAL [None]
  - ABDOMINAL DISTENSION [None]
